FAERS Safety Report 7978300-8 (Version None)
Quarter: 2011Q4

REPORT INFORMATION
  Report Type: 
  Country: None (occurrence: None)
  Receive Date: 20111214
  Receipt Date: 20111207
  Transmission Date: 20120403
  Serious: Yes (Death)
  Sender: FDA-Public Use
  Company Number: FR-PFIZER INC-2011299385

PATIENT

DRUGS (1)
  1. DOSTINEX [Suspect]
     Dosage: UNK
     Route: 064

REACTIONS (2)
  - MATERNAL EXPOSURE TIMING UNSPECIFIED [None]
  - BRAIN MALFORMATION [None]
